FAERS Safety Report 6004780-3 (Version None)
Quarter: 2008Q4

REPORT INFORMATION
  Report Type: 
  Country: None (occurrence: None)
  Receive Date: 20081216
  Receipt Date: 20081202
  Transmission Date: 20090506
  Serious: No
  Sender: FDA-Public Use
  Company Number: FR-ELI_LILLY_AND_COMPANY-FR200810002354

PATIENT
  Age: 48 Year
  Sex: Female
  Weight: 55 kg

DRUGS (5)
  1. CYMBALTA [Suspect]
     Indication: DEPRESSION
     Dosage: 60 MG, DAILY (1/D)
     Route: 048
     Dates: start: 20080710, end: 20080819
  2. CYMBALTA [Suspect]
     Dosage: 30 MG, DAILY (1/D)
     Route: 048
     Dates: start: 20080819, end: 20080902
  3. ZOLPIDEM [Concomitant]
     Indication: SLEEP DISORDER
     Dosage: UNK, UNKNOWN
     Route: 048
     Dates: start: 20070201
  4. XANAX [Concomitant]
     Indication: ANXIETY
     Dosage: 0.25 MG, DAILY (1/D)
     Route: 048
     Dates: start: 20070201
  5. ACETAMINOPHEN [Concomitant]
     Dosage: UNK, UNKNOWN
     Route: 048
     Dates: start: 20060101

REACTIONS (9)
  - ARTHRALGIA [None]
  - ASTHENIA [None]
  - DYSPEPSIA [None]
  - HEPATIC FUNCTION ABNORMAL [None]
  - HYPOTENSION [None]
  - INSOMNIA [None]
  - NAUSEA [None]
  - PSYCHOMOTOR HYPERACTIVITY [None]
  - VERTIGO [None]
